FAERS Safety Report 8777558 (Version 2)
Quarter: 2012Q4

REPORT INFORMATION
  Report Type: 
  Country: US (occurrence: US)
  Receive Date: 20120912
  Receipt Date: 20120912
  Transmission Date: 20130627
  Serious: No
  Sender: FDA-Public Use
  Company Number: US-VERTEX PHARMACEUTICAL INC.-AE-2012-003226

PATIENT

DRUGS (12)
  1. KALYDECO [Suspect]
     Indication: CYSTIC FIBROSIS
     Dosage: 150 mg, UNK
     Route: 048
     Dates: start: 20120208, end: 20120328
  2. FLOVENT [Concomitant]
  3. SINGULAIR [Concomitant]
  4. AZITHROMYCIN [Concomitant]
  5. PRILOSEC [Concomitant]
  6. MIRALAX [Concomitant]
  7. PULMOZYME [Concomitant]
  8. HYPERTONIC SALINE SOLUTION [Suspect]
  9. LACTOBACILLUS [Concomitant]
  10. CALRITIN [Concomitant]
  11. VITAMAX [Concomitant]
  12. ZENPEP [Concomitant]

REACTIONS (16)
  - Sleep disorder [Recovered/Resolved]
  - Stomatitis [Recovered/Resolved]
  - Nightmare [Recovered/Resolved]
  - Chills [Recovered/Resolved]
  - Flatulence [Recovered/Resolved]
  - Decreased appetite [Recovered/Resolved]
  - Anger [Recovered/Resolved]
  - Hot flush [Recovered/Resolved]
  - Fatigue [Recovered/Resolved]
  - Affect lability [Recovered/Resolved]
  - Musculoskeletal pain [Recovered/Resolved]
  - Arthralgia [Recovered/Resolved]
  - Nausea [Recovered/Resolved]
  - Diarrhoea [Recovered/Resolved]
  - Dizziness [Recovered/Resolved]
  - Headache [Recovered/Resolved]
